FAERS Safety Report 5505163-2 (Version None)
Quarter: 2007Q4

REPORT INFORMATION
  Report Type: 
  Country: None (occurrence: None)
  Receive Date: 20071102
  Receipt Date: 20071019
  Transmission Date: 20080405
  Serious: Yes (Other)
  Sender: FDA-Public Use
  Company Number: GB-ASTRAZENECA-2007GB02182

PATIENT
  Sex: Female
  Weight: 2.2 kg

DRUGS (3)
  1. BUDESONIDE + FORMOTEROL [Suspect]
     Indication: ASTHMA
     Dosage: TAKEN BY MOTHER FOR ASTHMA
     Route: 064
  2. FLUOXETINE [Suspect]
     Indication: DEPRESSION
     Dosage: TAKEN BY MOTHER FOR DEPRESSION
     Route: 064
  3. ALBUTEROL [Suspect]
     Indication: ASTHMA
     Dosage: TAKEN BY MOTHER FOR ASTHMA
     Route: 064

REACTIONS (1)
  - SEPSIS [None]
